FAERS Safety Report 20272545 (Version 2)
Quarter: 2022Q1

REPORT INFORMATION
  Report Type: Spontaneous
  Country: IT (occurrence: IT)
  Receive Date: 20220101
  Receipt Date: 20220316
  Transmission Date: 20220423
  Serious: Yes (Hospitalization, Other)
  Sender: FDA-Public Use
  Company Number: IT-NOVARTISPH-NVSC2021IT298111

PATIENT
  Age: 47 Year
  Sex: Male

DRUGS (4)
  1. AZITHROMYCIN DIHYDRATE [Interacting]
     Active Substance: AZITHROMYCIN DIHYDRATE
     Indication: Pneumonia
     Dosage: UNK
     Route: 065
  2. HYDROXYCHLOROQUINE [Interacting]
     Active Substance: HYDROXYCHLOROQUINE
     Indication: Pneumonia
     Dosage: UNK
     Route: 065
  3. ENOXAPARIN [Suspect]
     Active Substance: ENOXAPARIN
     Indication: Pneumonia
     Dosage: UNK
     Route: 065
  4. TOCILIZUMAB [Suspect]
     Active Substance: TOCILIZUMAB
     Indication: Interleukin level
     Dosage: 8 MG/KG, UNKNOWN
     Route: 065

REACTIONS (7)
  - Blood osmolarity increased [Recovered/Resolved]
  - Hyponatraemia [Recovered/Resolved]
  - Automatism [Recovered/Resolved]
  - Abnormal behaviour [Recovered/Resolved]
  - Inappropriate antidiuretic hormone secretion [Recovered/Resolved]
  - Guillain-Barre syndrome [Recovered/Resolved]
  - Drug interaction [Unknown]
